FAERS Safety Report 6925597-9 (Version None)
Quarter: 2010Q3

REPORT INFORMATION
  Report Type: 
  Country: None (occurrence: None)
  Receive Date: 20100816
  Receipt Date: 20100805
  Transmission Date: 20110219
  Serious: Yes (Hospitalization)
  Sender: FDA-Public Use
  Company Number: US-JNJFOC-20100802452

PATIENT
  Sex: Male
  Weight: 25.6 kg

DRUGS (8)
  1. INFLIXIMAB, RECOMBINANT [Suspect]
     Indication: CROHN'S DISEASE
     Route: 042
  2. HUMIRA [Concomitant]
     Indication: CROHN'S DISEASE
  3. MERCAPTOPURINE [Concomitant]
  4. 5-ASA [Concomitant]
     Route: 048
  5. CHOLECALCIFEROL [Concomitant]
  6. TRIAMCINOLONE [Concomitant]
  7. CEPHALOSPORINS [Concomitant]
  8. PEPTAMEN [Concomitant]

REACTIONS (1)
  - CROHN'S DISEASE [None]
